FAERS Safety Report 17597661 (Version 7)
Quarter: 2021Q3

REPORT INFORMATION
  Report Type: Report from Study
  Country: CO (occurrence: CO)
  Receive Date: 20200330
  Receipt Date: 20210929
  Transmission Date: 20211014
  Serious: Yes (Hospitalization, Other)
  Sender: FDA-Public Use
  Company Number: NVSC2019CO009478

PATIENT
  Sex: Female

DRUGS (3)
  1. TASIGNA [Suspect]
     Active Substance: NILOTINIB
     Dosage: 300 MG, Q12H (TABLET)
     Route: 048
  2. IMATINIB. [Suspect]
     Active Substance: IMATINIB MESYLATE
     Indication: PRODUCT USED FOR UNKNOWN INDICATION
     Dosage: UNK
     Route: 065
  3. TASIGNA [Suspect]
     Active Substance: NILOTINIB
     Indication: CHRONIC MYELOID LEUKAEMIA
     Dosage: 600 MG, QD
     Route: 048
     Dates: start: 20190812

REACTIONS (30)
  - Stress [Unknown]
  - Gait disturbance [Unknown]
  - Swelling face [Unknown]
  - Asthenia [Unknown]
  - Headache [Unknown]
  - Arthralgia [Unknown]
  - Back pain [Unknown]
  - Malignant neoplasm progression [Unknown]
  - Anxiety [Unknown]
  - Arthritis [Unknown]
  - Platelet count decreased [Unknown]
  - Haemoptysis [Unknown]
  - Inappropriate schedule of product administration [Unknown]
  - Nervousness [Unknown]
  - Depressed mood [Unknown]
  - Cardiovascular disorder [Unknown]
  - Weight decreased [Unknown]
  - Malaise [Unknown]
  - Peripheral swelling [Unknown]
  - Ear pain [Unknown]
  - Hypertension [Unknown]
  - Fluid retention [Unknown]
  - Limb discomfort [Unknown]
  - White blood cell count decreased [Unknown]
  - Pain in extremity [Unknown]
  - Thrombosis [Unknown]
  - Chronic myeloid leukaemia [Unknown]
  - Decreased immune responsiveness [Unknown]
  - Somnolence [Unknown]
  - Swelling [Unknown]
